FAERS Safety Report 19680236 (Version 1)
Quarter: 2021Q3

REPORT INFORMATION
  Report Type: Spontaneous
  Country: US (occurrence: US)
  Receive Date: 20210809
  Receipt Date: 20210809
  Transmission Date: 20211014
  Serious: Yes (Death)
  Sender: FDA-Public Use
  Company Number: None

PATIENT
  Sex: Female

DRUGS (9)
  1. ALLOPURINOL. [Concomitant]
     Active Substance: ALLOPURINOL
  2. TADALAFIL 20 MG TAB [Suspect]
     Active Substance: TADALAFIL
     Indication: PULMONARY HYPERTENSION
     Dosage: SEE PAGE 2:?TAKE 2 TABLETS BY MOUT DAILY
     Route: 048
     Dates: start: 20181108, end: 202107
  3. GABAPENTIN. [Concomitant]
     Active Substance: GABAPENTIN
  4. ALDACTONE TAB [Concomitant]
  5. ASPIRIN EC [Concomitant]
     Active Substance: ASPIRIN
  6. SOTALOL. [Concomitant]
     Active Substance: SOTALOL
  7. JANUVIA [Concomitant]
     Active Substance: SITAGLIPTIN PHOSPHATE
  8. LASIX [Concomitant]
     Active Substance: FUROSEMIDE
  9. METALAZONE [Concomitant]

REACTIONS (1)
  - Death [None]
